FAERS Safety Report 10895905 (Version 1)
Quarter: 2015Q1

REPORT INFORMATION
  Report Type: Spontaneous
  Country: JP (occurrence: JP)
  Receive Date: 20150307
  Receipt Date: 20150307
  Transmission Date: 20150721
  Serious: Yes (Other)
  Sender: FDA-Public Use
  Company Number: JP-APOTEX-2015AP007202

PATIENT
  Age: 76 Year
  Sex: Male

DRUGS (4)
  1. PAXIL [Suspect]
     Active Substance: PAROXETINE HYDROCHLORIDE
     Dosage: 20 MG, QD
  2. QUAZEPAM. [Concomitant]
     Active Substance: QUAZEPAM
     Indication: DEPRESSION
     Dosage: 15 MG/DAY
  3. ALPRAZOLAM. [Concomitant]
     Active Substance: ALPRAZOLAM
     Indication: DEPRESSION
     Dosage: 1.2 MG/DAY
  4. PAXIL [Suspect]
     Active Substance: PAROXETINE HYDROCHLORIDE
     Indication: DEPRESSION
     Dosage: 10 MG, QD

REACTIONS (6)
  - Tremor [Recovered/Resolved]
  - Altered state of consciousness [Recovered/Resolved]
  - Status epilepticus [Recovered/Resolved]
  - Electroencephalogram abnormal [Recovered/Resolved]
  - Motor dysfunction [Recovered/Resolved]
  - Depressed level of consciousness [Recovered/Resolved]
